FAERS Safety Report 22754611 (Version 2)
Quarter: 2023Q4

REPORT INFORMATION
  Report Type: Report from Study
  Country: US (occurrence: None)
  Receive Date: 20230727
  Receipt Date: 20231025
  Transmission Date: 20240109
  Serious: Yes (Hospitalization)
  Sender: FDA-Public Use
  Company Number: US-ROCHE-3349257

PATIENT

DRUGS (2)
  1. TRASTUZUMAB [Suspect]
     Active Substance: TRASTUZUMAB
     Indication: Neoplasm
     Dosage: 600 MG/DOSE, MOST RECENT DOSE OF STUDY DRUG WAS RECEIVED ON 11/APR/2023
     Route: 058
     Dates: start: 20230303
  2. TUCATINIB [Suspect]
     Active Substance: TUCATINIB
     Indication: Neoplasm
     Dosage: MOST RECENT DOSE OF STUDY DRUG WAS RECEIVED ON 11/APR/2023
     Route: 048
     Dates: start: 20230303

REACTIONS (1)
  - Small intestinal obstruction [Recovered/Resolved]

NARRATIVE: CASE EVENT DATE: 20230411
